FAERS Safety Report 8934042 (Version 1)
Quarter: 2012Q4

REPORT INFORMATION
  Report Type: 
  Country: US (occurrence: US)
  Receive Date: 20121129
  Receipt Date: 20121129
  Transmission Date: 20130627
  Serious: Yes (Other)
  Sender: FDA-Public Use
  Company Number: US-BAYER-2012-124348

PATIENT
  Age: 43 Year

DRUGS (6)
  1. YASMIN [Suspect]
     Dosage: UNK
  2. SALOPAZ [Concomitant]
  3. VICODIN [Concomitant]
  4. FLEXERIL [Concomitant]
  5. CYCLOBENZAPRINE [Concomitant]
     Indication: MUSCLE SPASM
  6. HYDROCODONE W/ACETAMINOPHEN [Concomitant]
     Indication: PAIN NOS

REACTIONS (1)
  - Deep vein thrombosis [None]
